FAERS Safety Report 5213229-X (Version None)
Quarter: 2007Q1

REPORT INFORMATION
  Report Type: 
  Country: None (occurrence: None)
  Receive Date: 20070118
  Receipt Date: 20070118
  Transmission Date: 20070707
  Serious: Yes (Death, Hospitalization, Other)
  Sender: FDA-Public Use
  Company Number: None

PATIENT
  Sex: Male

DRUGS (20)
  1. WARFARIN SODIUM [Suspect]
     Indication: CEREBROVASCULAR ACCIDENT
     Dosage: 3 MG  DAILY  PO
     Route: 048
     Dates: start: 20060527, end: 20060602
  2. ENOXAPARIN SODIUM [Suspect]
     Indication: CEREBROVASCULAR ACCIDENT
     Dosage: 90 MG  BID  SQ
     Route: 058
     Dates: start: 20060530, end: 20060602
  3. AUGMENTIN '125' [Concomitant]
  4. ASPIRIN [Concomitant]
  5. METOPROLOL SUCCINATE [Concomitant]
  6. FUROSEMIDE [Concomitant]
  7. SPIRONOLACTONE [Concomitant]
  8. POTASSIUM CHLORIDE [Concomitant]
  9. NITROGLYCERIN [Concomitant]
  10. LEVOTHYROXINE SODIUM [Concomitant]
  11. INSULIN [Concomitant]
  12. OMEPRAZOLE [Concomitant]
  13. TEMAZEPAM [Concomitant]
  14. ZOLPIDEM TARTRATE [Concomitant]
  15. VICODIN [Concomitant]
  16. OXYCODONE HCL [Concomitant]
  17. APAP TAB [Concomitant]
  18. TRAVOPROST [Concomitant]
  19. PATANOL [Concomitant]
  20. DORZOLAMIDE HCL [Concomitant]

REACTIONS (1)
  - HAEMORRHAGE INTRACRANIAL [None]
